FAERS Safety Report 7928879-7 (Version None)
Quarter: 2011Q4

REPORT INFORMATION
  Report Type: 
  Country: None (occurrence: None)
  Receive Date: 20111118
  Receipt Date: 20111104
  Transmission Date: 20120403
  Serious: Yes (Death, Life-Threatening)
  Sender: FDA-Public Use
  Company Number: JP-WATSON-2011-15628

PATIENT
  Age: 91 Year
  Sex: Male

DRUGS (12)
  1. RAPAFLO [Suspect]
     Indication: DYSURIA
     Dosage: 8 MG, DAILY
     Route: 048
     Dates: start: 20110822, end: 20110902
  2. GASMOTIN [Concomitant]
     Indication: PRODUCT USED FOR UNKNOWN INDICATION
     Dosage: 5 MG, TID
     Route: 051
     Dates: start: 20110712, end: 20110822
  3. ALPINY [Concomitant]
     Indication: PYREXIA
     Dosage: 100 MG, PRN
     Route: 054
     Dates: start: 20110827
  4. AMLODIPINE [Concomitant]
     Indication: PRODUCT USED FOR UNKNOWN INDICATION
     Dosage: 5 MG, BID
     Route: 051
     Dates: end: 20110822
  5. AMLODIPINE [Concomitant]
     Dosage: 2.5 MG, DAILY
     Route: 051
     Dates: start: 20110823, end: 20110916
  6. SENNOSIDE                          /00571901/ [Concomitant]
     Indication: PRODUCT USED FOR UNKNOWN INDICATION
     Dosage: 0.15 G, DAILY
     Route: 051
     Dates: start: 20110729, end: 20110906
  7. SOLULACT [Concomitant]
     Indication: PRODUCT USED FOR UNKNOWN INDICATION
     Dosage: UNK
     Route: 042
     Dates: start: 20110827
  8. HARTAM [Concomitant]
     Indication: DYSURIA
     Dosage: 0.1 MG, DAILY
     Route: 051
     Dates: end: 20110821
  9. MAGMITT [Concomitant]
     Indication: PRODUCT USED FOR UNKNOWN INDICATION
     Dosage: 330 MG, TID
     Route: 051
     Dates: start: 20110730, end: 20110916
  10. PENMALIN [Concomitant]
     Indication: PRODUCT USED FOR UNKNOWN INDICATION
     Dosage: 1 G, DAILY
     Route: 065
     Dates: start: 20110827, end: 20110912
  11. LANIZAC [Concomitant]
     Indication: PRODUCT USED FOR UNKNOWN INDICATION
     Dosage: 150 MG, DAILY
     Route: 051
     Dates: end: 20110916
  12. CEREB                              /00228502/ [Concomitant]
     Indication: EPILEPSY
     Dosage: 200 MG, TID
     Route: 051
     Dates: end: 20110916

REACTIONS (2)
  - PNEUMONIA ASPIRATION [None]
  - WHITE BLOOD CELL COUNT DECREASED [None]
